FAERS Safety Report 11344259 (Version 1)
Quarter: 2015Q3

REPORT INFORMATION
  Report Type: Spontaneous
  Country: US (occurrence: None)
  Receive Date: 20150803
  Receipt Date: 20150803
  Transmission Date: 20151125
  Serious: No
  Sender: FDA-Public Use
  Company Number: None

PATIENT
  Age: 28 Year
  Sex: Male
  Weight: 72.58 kg

DRUGS (2)
  1. CELEXA [Concomitant]
     Active Substance: CITALOPRAM HYDROBROMIDE
  2. ZUBSOLV [Suspect]
     Active Substance: BUPRENORPHINE HYDROCHLORIDE\NALOXONE HYDROCHLORIDE
     Indication: SUBSTANCE ABUSE
     Dosage: 1 DAILY  ONCE DAILY  TAKEN UNDER THE TONGUE
     Route: 060
     Dates: start: 20150802, end: 20150802

REACTIONS (3)
  - Tongue ulceration [None]
  - Skin disorder [None]
  - Tongue disorder [None]

NARRATIVE: CASE EVENT DATE: 20150802
